FAERS Safety Report 7435916-5 (Version None)
Quarter: 2011Q2

REPORT INFORMATION
  Report Type: 
  Country: None (occurrence: None)
  Receive Date: 20110418
  Receipt Date: 20110404
  Transmission Date: 20111010
  Serious: Yes (Hospitalization)
  Sender: FDA-Public Use
  Company Number: 1000019957

PATIENT
  Age: 85 Year
  Sex: Female

DRUGS (13)
  1. LASILIX (FUROSEMIDE) (FUROSEMIDE) [Concomitant]
  2. OFLOXACIN [Concomitant]
  3. NEBIVOLOL HCL [Suspect]
     Dosage: ORAL
     Route: 048
     Dates: start: 20100920, end: 20101011
  4. PLAVIX [Suspect]
     Indication: MYOCARDIAL INFARCTION
     Dosage: 75 MG (75 MG, 1 IN 1 D), ORAL; ORAL
     Route: 048
     Dates: start: 20100810, end: 20100913
  5. PLAVIX [Suspect]
     Indication: MYOCARDIAL INFARCTION
     Dosage: 75 MG (75 MG, 1 IN 1 D), ORAL; ORAL
     Route: 048
     Dates: start: 20101009
  6. FUMAFER (FERROUS FUMARATE) (FERROUS FUMARATE) [Concomitant]
  7. BISOPROLOL FUMARATE [Suspect]
     Indication: MYOCARDIAL INFARCTION
     Dates: end: 20100920
  8. LANSOPRAZOLE [Suspect]
     Indication: ULCER
     Dosage: 30 MG (30 MG, 1 IN 1 D), ORAL
     Route: 048
     Dates: start: 20100820, end: 20100913
  9. KARDEGIC (ACETYLSALICYLATE LYSINE) [Suspect]
     Indication: MYOCARDIAL INFARCTION
     Dosage: 160 MG (160 MG, 1 IN 1 D), ORAL
     Route: 048
     Dates: start: 20100810, end: 20100913
  10. PROTON PUMP INHIBITOR (NOS) (PROTON PUMP INHIBITOR) (PROTON PUMP INHIB [Concomitant]
  11. PRAVASTATINE (PRAVASTATIN) (PRAVASTATIN) [Concomitant]
  12. BISOPROLOL FUMARATE [Suspect]
     Indication: MYOCARDIAL INFARCTION
     Dosage: 5 MG (2.5 MG, 2 IN 1 D)
     Dates: start: 20101011, end: 20101015
  13. FRAXIPARINE (NADROPARIN CALCIUM) (NADROPARIN CALCIUM) [Concomitant]

REACTIONS (3)
  - TOXIC SKIN ERUPTION [None]
  - LICHENOID KERATOSIS [None]
  - HIATUS HERNIA [None]
